FAERS Safety Report 8294450-3 (Version None)
Quarter: 2012Q2

REPORT INFORMATION
  Report Type: 
  Country: None (occurrence: None)
  Receive Date: 20120418
  Receipt Date: 20120412
  Transmission Date: 20120825
  Serious: Yes (Hospitalization, Other)
  Sender: FDA-Public Use
  Company Number: PHEH2012US003738

PATIENT
  Sex: Male

DRUGS (9)
  1. GILENYA [Suspect]
     Indication: MULTIPLE SCLEROSIS
     Dosage: 0.5 MG, QD
     Route: 048
     Dates: start: 20110901, end: 20120401
  2. NIFEDIPINE [Concomitant]
     Indication: HYPERTENSION
  3. FAMPRIDINE [Concomitant]
     Indication: GAIT DISTURBANCE
     Dosage: 10 MG, Q12H
     Dates: start: 20110401
  4. BACLOFEN [Concomitant]
  5. VESICARE [Concomitant]
     Indication: BLADDER DISORDER
  6. NEURONTIN [Concomitant]
     Dosage: 600 MG, TID
  7. FAMPRIDINE [Concomitant]
     Indication: MULTIPLE SCLEROSIS
  8. PROCARDIA [Concomitant]
  9. DIFLUCAN [Concomitant]

REACTIONS (19)
  - PAIN IN EXTREMITY [None]
  - SQUAMOUS CELL CARCINOMA [None]
  - LYMPHOCYTE COUNT DECREASED [None]
  - PARAESTHESIA [None]
  - SENSORY LOSS [None]
  - ANION GAP DECREASED [None]
  - NEUTROPHIL COUNT INCREASED [None]
  - EOSINOPHIL COUNT DECREASED [None]
  - WHITE BLOOD CELL COUNT DECREASED [None]
  - DRY EYE [None]
  - OEDEMA PERIPHERAL [None]
  - ERYTHEMA [None]
  - SKIN DISCOLOURATION [None]
  - FEELING HOT [None]
  - VISION BLURRED [None]
  - VASCULITIS [None]
  - NYSTAGMUS [None]
  - BLOOD GLUCOSE INCREASED [None]
  - ALANINE AMINOTRANSFERASE INCREASED [None]
